FAERS Safety Report 7038038-0 (Version None)
Quarter: 2010Q4

REPORT INFORMATION
  Report Type: 
  Country: None (occurrence: None)
  Receive Date: 20101011
  Receipt Date: 20100922
  Transmission Date: 20110411
  Serious: Yes (Hospitalization, Other)
  Sender: FDA-Public Use
  Company Number: PHEH2006US01241

PATIENT
  Sex: Female
  Weight: 58.956 kg

DRUGS (15)
  1. AREDIA [Suspect]
     Indication: METASTASES TO BONE
     Dosage: UNK,UNK
     Route: 042
     Dates: start: 20020612, end: 20021127
  2. ZOMETA [Suspect]
     Indication: METASTASES TO BONE
     Dosage: UNK,UNK
     Route: 042
     Dates: start: 20021223, end: 20060208
  3. FEMARA [Concomitant]
     Dosage: 2.5 MG, QD
  4. LASIX [Concomitant]
     Dosage: 40 MG, QD
  5. PRINIVIL [Concomitant]
     Dosage: 20 MG, QD
  6. COUMADIN [Concomitant]
     Dosage: 1 MG, QD
  7. LORTAB [Concomitant]
  8. NAPROXEN [Concomitant]
     Dosage: 500 MG, BID
  9. OXYCONTIN [Concomitant]
     Dosage: 10 MG, PRN
  10. ASPIRIN [Concomitant]
  11. MULTIPLE VITAMINS [Concomitant]
  12. TAMOXIFEN CITRATE [Concomitant]
     Indication: BREAST CANCER
     Dosage: 20 MG, QD
  13. METHOTREXATE [Concomitant]
  14. HYDROXYCHLOROQUINE [Concomitant]
  15. TAXOTERE [Concomitant]

REACTIONS (53)
  - ANAEMIA [None]
  - ANAEMIA POSTOPERATIVE [None]
  - ARTERIAL STENOSIS [None]
  - ARTERIOSCLEROSIS CORONARY ARTERY [None]
  - ARTHRALGIA [None]
  - BONE DISORDER [None]
  - BREAST NECROSIS [None]
  - BUNDLE BRANCH BLOCK RIGHT [None]
  - CAROTID ENDARTERECTOMY [None]
  - CHOLECYSTECTOMY [None]
  - CONSTIPATION [None]
  - CYSTOPEXY [None]
  - ELECTROCARDIOGRAM ABNORMAL [None]
  - ELECTROCARDIOGRAM ST SEGMENT DEPRESSION [None]
  - ERYTHEMA [None]
  - FALL [None]
  - FATIGUE [None]
  - FEMUR FRACTURE [None]
  - FRACTURE [None]
  - HIP ARTHROPLASTY [None]
  - HYPERLIPIDAEMIA [None]
  - INFECTED SEBACEOUS CYST [None]
  - INTERVERTEBRAL DISC DEGENERATION [None]
  - IRRITABLE BOWEL SYNDROME [None]
  - JOINT SPRAIN [None]
  - JOINT STIFFNESS [None]
  - JOINT SWELLING [None]
  - KNEE OPERATION [None]
  - METASTASES TO BONE [None]
  - MYOCARDIAL INFARCTION [None]
  - OPEN REDUCTION OF FRACTURE [None]
  - ORAL PAIN [None]
  - ORAL SURGERY [None]
  - OSTEOARTHRITIS [None]
  - OSTEOMYELITIS [None]
  - OSTEONECROSIS OF JAW [None]
  - OSTEOPOROSIS [None]
  - PEPTIC ULCER HAEMORRHAGE [None]
  - PERINEURIAL CYST [None]
  - PERIODONTAL DISEASE [None]
  - PERIODONTITIS [None]
  - PRIMARY SEQUESTRUM [None]
  - PYELONEPHRITIS [None]
  - RHEUMATOID ARTHRITIS [None]
  - RIB FRACTURE [None]
  - SCAR [None]
  - SINUSITIS [None]
  - STRESS URINARY INCONTINENCE [None]
  - TONSILLECTOMY [None]
  - TOOTH ABSCESS [None]
  - URETHRAL OPERATION [None]
  - URINARY RETENTION [None]
  - URINARY TRACT INFECTION [None]
